FAERS Safety Report 19357856 (Version 1)
Quarter: 2021Q2

REPORT INFORMATION
  Report Type: Spontaneous
  Country: JP (occurrence: JP)
  Receive Date: 20210601
  Receipt Date: 20210601
  Transmission Date: 20210717
  Serious: Yes (Other)
  Sender: FDA-Public Use
  Company Number: NVSJ2021JP007769

PATIENT
  Sex: Female

DRUGS (1)
  1. NEORAL [Suspect]
     Active Substance: CYCLOSPORINE
     Indication: MYASTHENIA GRAVIS
     Dosage: UNK
     Route: 048

REACTIONS (11)
  - Diabetes mellitus [Unknown]
  - Blood glucose increased [Unknown]
  - Gait disturbance [Unknown]
  - Blood pressure abnormal [Unknown]
  - Somnolence [Unknown]
  - Muscular weakness [Unknown]
  - Oedema [Unknown]
  - Arrhythmia [Unknown]
  - Haematuria [Unknown]
  - Dysstasia [Unknown]
  - Product use in unapproved indication [Unknown]
